FAERS Safety Report 8902046 (Version 2)
Quarter: 2012Q4

REPORT INFORMATION
  Report Type: 
  Country: US (occurrence: US)
  Receive Date: 20121112
  Receipt Date: 20121211
  Transmission Date: 20130627
  Serious: Yes (Hospitalization, Other)
  Sender: FDA-Public Use
  Company Number: US-ROCHE-CID000000002222109

PATIENT

DRUGS (7)
  1. KLONOPIN [Suspect]
     Indication: PRODUCT USED FOR UNKNOWN INDICATION
     Route: 065
  2. DEPAKOTE [Concomitant]
  3. ABILIFY [Concomitant]
  4. PAXIL [Concomitant]
     Route: 065
  5. PAXIL [Concomitant]
     Route: 065
  6. OXYCONTIN [Concomitant]
     Route: 065
  7. XANAX [Concomitant]

REACTIONS (5)
  - Respiratory depression [Unknown]
  - Brain injury [Unknown]
  - Overdose [Unknown]
  - Upper respiratory tract infection [Unknown]
  - Pneumonia [Unknown]
